FAERS Safety Report 17145571 (Version 4)
Quarter: 2020Q1

REPORT INFORMATION
  Report Type: Report from Study
  Country: CA (occurrence: CA)
  Receive Date: 20191212
  Receipt Date: 20200306
  Transmission Date: 20200409
  Serious: Yes (Other)
  Sender: FDA-Public Use
  Company Number: CA-ASTRAZENECA-2019SF47327

PATIENT
  Age: 23393 Day
  Sex: Male

DRUGS (6)
  1. ENEMA (SODIUM PHOSPHATE, DIBASIC\SODIUM PHOSPHATE, MONOBASIC) [Concomitant]
     Active Substance: SODIUM PHOSPHATE, DIBASIC\SODIUM PHOSPHATE, MONOBASIC
     Route: 065
     Dates: start: 20191005
  2. NASONEX [Concomitant]
     Active Substance: MOMETASONE FUROATE
     Indication: RHINITIS
  3. PREDNISONE. [Concomitant]
     Active Substance: PREDNISONE
     Indication: ASTHMA
     Route: 065
     Dates: start: 20191005
  4. TRELEGY ELLIPTA [Concomitant]
     Active Substance: FLUTICASONE FUROATE\UMECLIDINIUM BROMIDE\VILANTEROL TRIFENATATE
     Dates: start: 201903
  5. VENTOLIN [Concomitant]
     Active Substance: ALBUTEROL SULFATE
  6. FASENRA [Suspect]
     Active Substance: BENRALIZUMAB
     Indication: ASTHMA
     Dosage: 30.0MG UNKNOWN
     Route: 058
     Dates: start: 20190422, end: 201912

REACTIONS (4)
  - Asthma [Not Recovered/Not Resolved]
  - Colitis ulcerative [Unknown]
  - Blood pressure decreased [Recovered/Resolved]
  - Drug ineffective [Unknown]

NARRATIVE: CASE EVENT DATE: 20191004
